FAERS Safety Report 5858361-2 (Version None)
Quarter: 2008Q3

REPORT INFORMATION
  Report Type: 
  Country: None (occurrence: None)
  Receive Date: 20080822
  Receipt Date: 20080812
  Transmission Date: 20090109
  Serious: Yes (Hospitalization)
  Sender: FDA-Public Use
  Company Number: 2008-02862

PATIENT
  Age: 52 Year
  Sex: Male
  Weight: 85 kg

DRUGS (11)
  1. VELCADE [Suspect]
     Indication: MULTIPLE MYELOMA
     Dosage: 1.98 MG, INTRAVENOUS
     Route: 042
     Dates: start: 20080711, end: 20080721
  2. CYCLOPHOSPHAMIDE [Suspect]
     Indication: MULTIPLE MYELOMA
     Dosage: 1782 MG, INTRAVENOUS
     Route: 042
     Dates: start: 20080711, end: 20080711
  3. DEXAMETHASONE TAB [Suspect]
     Indication: MULTIPLE MYELOMA
  4. PANTOPRAZOLE SODIUM [Concomitant]
  5. ALLOPURINOL [Concomitant]
  6. PALLADONE [Concomitant]
  7. CARVEDILOL [Concomitant]
  8. NOVALGIN (METAMIZOLE SODIUM) [Concomitant]
  9. MOVICOL (SODIUM BICARBONATE, SODIUM CHLORIDE, MACROGOL, POTASSIUM CHLO [Concomitant]
  10. MCP (METOCLOPRAMIDE HYDROCHLORIDE) [Concomitant]
  11. HYDROMORPHONE HCL [Concomitant]

REACTIONS (10)
  - BACTERIAL INFECTION [None]
  - BLOOD CULTURE POSITIVE [None]
  - CARDIAC FAILURE [None]
  - CULTURE URINE POSITIVE [None]
  - ENTEROBACTER INFECTION [None]
  - ENTEROCOCCAL INFECTION [None]
  - PSEUDOMONAS INFECTION [None]
  - RENAL FAILURE [None]
  - SEPSIS [None]
  - STAPHYLOCOCCAL INFECTION [None]
